FAERS Safety Report 9539245 (Version 1)
Quarter: 2013Q3

REPORT INFORMATION
  Report Type: Spontaneous
  Country: US (occurrence: US)
  Receive Date: 20130920
  Receipt Date: 20130920
  Transmission Date: 20140515
  Serious: Yes (Other)
  Sender: FDA-Public Use
  Company Number: US-BAYER-2013-113262

PATIENT
  Age: 25 Year
  Sex: Female

DRUGS (3)
  1. YAZ [Suspect]
  2. YASMIN [Suspect]
  3. INDOCIN [Concomitant]
     Indication: PAIN

REACTIONS (3)
  - Deep vein thrombosis [Recovered/Resolved]
  - Thrombosed varicose vein [Recovered/Resolved]
  - Thrombophlebitis superficial [Recovered/Resolved]
